FAERS Safety Report 8692504 (Version 2)
Quarter: 2012Q4

REPORT INFORMATION
  Report Type: 
  Country: DE (occurrence: DE)
  Receive Date: 20120730
  Receipt Date: 20120913
  Transmission Date: 20130627
  Serious: Yes (Other)
  Sender: FDA-Public Use
  Company Number: PHHY2012DE064116

PATIENT
  Age: 31 Year
  Sex: Female

DRUGS (1)
  1. CLINDAMYCIN [Suspect]
     Indication: ACUTE SINUSITIS
     Dosage: 3 DF, daily

REACTIONS (5)
  - Oesophagitis [Recovered/Resolved]
  - Odynophagia [Recovered/Resolved]
  - Dysphagia [Recovered/Resolved]
  - Oesophageal ulcer [None]
  - Erosive oesophagitis [None]
